FAERS Safety Report 4348549-4 (Version None)
Quarter: 2004Q2

REPORT INFORMATION
  Report Type: 
  Country: None (occurrence: None)
  Receive Date: 20040422
  Receipt Date: 20040413
  Transmission Date: 20050107
  Serious: Yes (Hospitalization)
  Sender: FDA-Public Use
  Company Number: 04P-056-0257311-00

PATIENT
  Age: 53 Year
  Sex: Male
  Weight: 160 kg

DRUGS (8)
  1. TRICOR [Suspect]
     Dosage: 160 MG, 1 IN 1 D, ORAL
     Route: 048
     Dates: start: 20040214, end: 20040304
  2. DIOSMIN [Concomitant]
  3. LORAZEPAM [Concomitant]
  4. VENLAFAXINE HCL [Concomitant]
  5. AMOXICILLIN AND CLAVULANATE POTASSIUM [Concomitant]
  6. RIFAMYCIN [Concomitant]
  7. RETINOL [Concomitant]
  8. HEPARIN-FRACTION, SODIUM SALT [Concomitant]

REACTIONS (6)
  - ESCHERICHIA URINARY TRACT INFECTION [None]
  - HYPERKALAEMIA [None]
  - METABOLIC ACIDOSIS [None]
  - NEPHRITIS INTERSTITIAL [None]
  - PYELONEPHRITIS [None]
  - RENAL FAILURE ACUTE [None]
